FAERS Safety Report 8158600-1 (Version None)
Quarter: 2012Q1

REPORT INFORMATION
  Report Type: 
  Country: None (occurrence: None)
  Receive Date: 20120223
  Receipt Date: 20120214
  Transmission Date: 20120608
  Serious: Yes (Hospitalization)
  Sender: FDA-Public Use
  Company Number: US-BAYER-2011-046014

PATIENT
  Age: 30 Year
  Sex: Female
  Weight: 81 kg

DRUGS (9)
  1. YASMIN [Suspect]
     Dosage: UNK
     Dates: start: 20030506, end: 20040429
  2. NSAID'S [Concomitant]
     Dosage: UNK UNK, PRN
     Route: 048
     Dates: start: 20010101
  3. AMBIEN [Concomitant]
     Dosage: UNK
     Route: 048
     Dates: start: 20030101, end: 20050101
  4. YASMIN [Suspect]
     Dosage: UNK
     Dates: start: 20011211, end: 20020501
  5. VICODIN [Concomitant]
     Indication: PAIN
     Dosage: UNK
     Route: 048
     Dates: start: 20040123
  6. VICODIN [Concomitant]
     Dosage: UNK
     Route: 048
     Dates: start: 20040409, end: 20040429
  7. DITROPAN [Concomitant]
     Indication: HYPERTONIC BLADDER
     Dosage: 10 MG, QD
     Route: 048
     Dates: start: 20040409, end: 20040429
  8. IBUPROFEN [Concomitant]
     Indication: PAIN
     Dosage: 600 MG, PRN
     Route: 048
     Dates: start: 20040409, end: 20040429
  9. AMBIEN [Concomitant]
     Indication: SLEEP DISORDER THERAPY
     Dosage: 10 MG, PRN
     Route: 048
     Dates: start: 20040409, end: 20040429

REACTIONS (5)
  - EMOTIONAL DISTRESS [None]
  - DEEP VEIN THROMBOSIS [None]
  - ANHEDONIA [None]
  - PAIN IN EXTREMITY [None]
  - OEDEMA PERIPHERAL [None]
